FAERS Safety Report 6343147-5 (Version None)
Quarter: 2009Q3

REPORT INFORMATION
  Report Type: 
  Country: None (occurrence: None)
  Receive Date: 20090903
  Receipt Date: 20090821
  Transmission Date: 20100115
  Serious: Yes (Disabling, Other)
  Sender: FDA-Public Use
  Company Number: 230175K09DEU

PATIENT
  Age: 52 Year
  Sex: Male
  Weight: 73 kg

DRUGS (4)
  1. REBIF [Suspect]
     Dosage: 3 IN 1 WEEKS, 2 IN 1 WEEKS
     Dates: start: 20000101
  2. REBIF [Suspect]
     Dosage: 3 IN 1 WEEKS, 2 IN 1 WEEKS
     Dates: start: 20000101
  3. PARACETAMOL (PARACETAMOL) [Concomitant]
  4. IBUPROFEN [Concomitant]

REACTIONS (6)
  - CHILLS [None]
  - CONVULSION [None]
  - FEELING COLD [None]
  - INJECTION SITE ERYTHEMA [None]
  - MUSCLE SPASMS [None]
  - PAIN [None]
